FAERS Safety Report 17800302 (Version 1)
Quarter: 2020Q2

REPORT INFORMATION
  Report Type: Spontaneous
  Country: US (occurrence: US)
  Receive Date: 20200518
  Receipt Date: 20200518
  Transmission Date: 20200714
  Serious: No
  Sender: FDA-Public Use
  Company Number: US-ABBVIE-20P-163-3301546-00

PATIENT
  Sex: Female

DRUGS (1)
  1. RINVOQ [Suspect]
     Active Substance: UPADACITINIB
     Indication: RHEUMATOID ARTHRITIS
     Route: 065

REACTIONS (21)
  - Fatigue [Unknown]
  - Neuralgia [Unknown]
  - Apathy [Unknown]
  - Swelling [Unknown]
  - Rheumatoid arthritis [Unknown]
  - Emotional distress [Unknown]
  - Dissociation [Unknown]
  - Bone pain [Unknown]
  - Musculoskeletal deformity [Unknown]
  - Asthenia [Unknown]
  - Apathy [Not Recovered/Not Resolved]
  - Pain [Unknown]
  - Joint injury [Unknown]
  - Pain in extremity [Unknown]
  - Headache [Unknown]
  - Decreased appetite [Unknown]
  - Musculoskeletal stiffness [Unknown]
  - Depression [Unknown]
  - Arthralgia [Unknown]
  - Mental fatigue [Unknown]
  - Grip strength decreased [Unknown]
